FAERS Safety Report 14583044 (Version 2)
Quarter: 2024Q4

REPORT INFORMATION
  Report Type: Spontaneous
  Country: IT (occurrence: IT)
  Receive Date: 20180228
  Receipt Date: 20241114
  Transmission Date: 20250115
  Serious: Yes (Death, Other)
  Sender: SANOFI AVENTIS
  Company Number: None

PATIENT
  Age: 39 Year
  Sex: Male

DRUGS (7)
  1. DOCETAXEL [Suspect]
     Active Substance: DOCETAXEL
     Dosage: UNK UNK,UNK
  2. IRINOTECAN [Suspect]
     Active Substance: IRINOTECAN
     Indication: Ewing^s sarcoma
     Dosage: 75 MG/M2,QCY
     Route: 042
     Dates: start: 20131016, end: 20140711
  3. GEMCITABINE [Suspect]
     Active Substance: GEMCITABINE
     Dosage: UNK UNK,UNK
  4. ETOPOSIDE [Suspect]
     Active Substance: ETOPOSIDE
     Dosage: UNK UNK,UNK
  5. CARBOPLATIN [Suspect]
     Active Substance: CARBOPLATIN
     Dosage: UNK UNK,UNK
  6. YONDELIS [Suspect]
     Active Substance: TRABECTEDIN
     Indication: Ewing^s sarcoma
     Dosage: 1 MG/M2,QCY
     Route: 042
     Dates: start: 20130918, end: 20140708
  7. DEXAMETHASONE [Concomitant]
     Active Substance: DEXAMETHASONE
     Indication: Premedication
     Dosage: 20 MG/M2
     Route: 041

REACTIONS (8)
  - Cerebrovascular accident [Fatal]
  - Hepatotoxicity [Fatal]
  - Diarrhoea [Fatal]
  - Transaminases increased [Fatal]
  - Haematotoxicity [Fatal]
  - Off label use [Fatal]
  - Hypertransaminasaemia [Unknown]
  - Pulmonary mass [Recovered/Resolved]
